FAERS Safety Report 25905770 (Version 1)
Quarter: 2025Q4

REPORT INFORMATION
  Report Type: Spontaneous
  Country: US (occurrence: US)
  Receive Date: 20251010
  Receipt Date: 20251010
  Transmission Date: 20260118
  Serious: No
  Sender: SANDOZ
  Company Number: US-002147023-NVSC2023US211378

PATIENT

DRUGS (12)
  1. DICLOFENAC [Suspect]
     Active Substance: DICLOFENAC
     Indication: Migraine
     Dosage: 50 MG (TAKES 1)
     Route: 065
  2. FLUOXETINE [Concomitant]
     Active Substance: FLUOXETINE HYDROCHLORIDE
     Indication: Depression
     Dosage: UNK (LOWEST DOSE)
     Route: 065
     Dates: start: 2019, end: 2020
  3. FLUOXETINE [Concomitant]
     Active Substance: FLUOXETINE HYDROCHLORIDE
     Indication: Anxiety
  4. HYDROXYZINE [Concomitant]
     Active Substance: HYDROXYZINE HYDROCHLORIDE
     Indication: Urticaria
     Dosage: 50 MG
     Route: 048
  5. Martimil [Concomitant]
     Indication: Migraine
     Dosage: 10 MG (DOSE HAS BEEN UPPED A FEW TIMES)
     Route: 048
     Dates: start: 202202
  6. Martimil [Concomitant]
     Dosage: 30 MG
     Route: 048
     Dates: start: 2022
  7. NORTRIPTYLINE [Concomitant]
     Active Substance: NORTRIPTYLINE
     Indication: Migraine
     Dosage: 10 MG (DOSE HAS BEEN UPPED A FEW TIMES)
     Route: 048
     Dates: start: 202202
  8. NORTRIPTYLINE [Concomitant]
     Active Substance: NORTRIPTYLINE
     Dosage: 30 MG
     Route: 048
     Dates: start: 2022
  9. VYVANSE [Concomitant]
     Active Substance: LISDEXAMFETAMINE DIMESYLATE
     Indication: Attention deficit hyperactivity disorder
     Dosage: 10 MG
     Route: 048
  10. VYVANSE [Concomitant]
     Active Substance: LISDEXAMFETAMINE DIMESYLATE
     Dosage: 30 MG
     Route: 048
     Dates: start: 2022
  11. ZOLOFT [Concomitant]
     Active Substance: SERTRALINE HYDROCHLORIDE
     Indication: Depression
     Dosage: UNK (LOWEST DOSE)
     Route: 065
     Dates: start: 2019, end: 2020
  12. ZOLOFT [Concomitant]
     Active Substance: SERTRALINE HYDROCHLORIDE
     Indication: Anxiety

REACTIONS (2)
  - Nausea [Unknown]
  - Drug ineffective [Unknown]
